FAERS Safety Report 9703269 (Version 1)
Quarter: 2013Q4

REPORT INFORMATION
  Report Type: Spontaneous
  Country: JP (occurrence: JP)
  Receive Date: 20131122
  Receipt Date: 20131122
  Transmission Date: 20140711
  Serious: Yes (Other)
  Sender: FDA-Public Use
  Company Number: JP-BRISTOL-MYERS SQUIBB COMPANY-19821594

PATIENT
  Age: 65 Year
  Sex: Male

DRUGS (2)
  1. METGLUCO [Suspect]
     Indication: DIABETES MELLITUS
     Dosage: 10MAY2013-UNK 500MG/D?31JUL2013-UNK 1000MG / D
     Route: 048
     Dates: start: 20130510
  2. GLUCOBAY [Suspect]
     Dates: start: 20130510

REACTIONS (1)
  - Liver function test abnormal [Unknown]
